FAERS Safety Report 21548742 (Version 1)
Quarter: 2022Q4

REPORT INFORMATION
  Report Type: Spontaneous
  Country: CH (occurrence: CH)
  Receive Date: 20221103
  Receipt Date: 20221103
  Transmission Date: 20230113
  Serious: Yes (Death, Hospitalization, Other)
  Sender: FDA-Public Use
  Company Number: CH-009507513-1806CHE000535

PATIENT
  Age: 48 Year
  Sex: Female

DRUGS (3)
  1. PEMBROLIZUMAB [Interacting]
     Active Substance: PEMBROLIZUMAB
     Indication: Malignant melanoma stage IV
     Dosage: SEVEN INFUSIONS
     Route: 065
     Dates: start: 201604, end: 201609
  2. VEMURAFENIB [Interacting]
     Active Substance: VEMURAFENIB
     Indication: Malignant melanoma stage IV
     Dosage: UNK
     Dates: start: 201609
  3. COBIMETINIB [Interacting]
     Active Substance: COBIMETINIB
     Indication: Malignant melanoma stage IV
     Dosage: UNK
     Dates: start: 201609

REACTIONS (3)
  - Drug reaction with eosinophilia and systemic symptoms [Fatal]
  - Autoimmune thyroiditis [Unknown]
  - Drug interaction [Recovered/Resolved]

NARRATIVE: CASE EVENT DATE: 20160801
